FAERS Safety Report 6471129-1 (Version None)
Quarter: 2009Q4

REPORT INFORMATION
  Report Type: 
  Country: None (occurrence: None)
  Receive Date: 20091203
  Receipt Date: 20090609
  Transmission Date: 20100525
  Serious: No
  Sender: FDA-Public Use
  Company Number: US-AMGEN-KDL321461

PATIENT
  Sex: Female

DRUGS (5)
  1. ENBREL [Suspect]
     Indication: RHEUMATOID ARTHRITIS
     Route: 058
     Dates: start: 20081118, end: 20081201
  2. ARAVA [Concomitant]
     Route: 048
     Dates: start: 20081021
  3. NEXIUM [Concomitant]
     Dates: start: 20070101
  4. OXYCODONE HCL [Concomitant]
     Dates: start: 20070101
  5. DEPO-MEDROL [Concomitant]
     Dates: start: 20081118, end: 20081118

REACTIONS (5)
  - ERYTHEMA [None]
  - FEELING HOT [None]
  - INJECTION SITE RASH [None]
  - PRURITUS [None]
  - SWELLING [None]
